FAERS Safety Report 6880126-3 (Version None)
Quarter: 2010Q3

REPORT INFORMATION
  Report Type: 
  Country: None (occurrence: None)
  Receive Date: 20100728
  Receipt Date: 20091130
  Transmission Date: 20110219
  Serious: No
  Sender: FDA-Public Use
  Company Number: US-BRISTOL-MYERS SQUIBB COMPANY-14874978

PATIENT
  Age: 30 Year
  Sex: Male

DRUGS (5)
  1. SPRYCEL [Suspect]
     Indication: CHRONIC MYELOID LEUKAEMIA
     Dates: start: 20090901
  2. LORATADINE [Concomitant]
  3. LISINOPRIL [Concomitant]
  4. FLOVENT [Concomitant]
  5. MULTI-VITAMINS [Concomitant]

REACTIONS (1)
  - HEPATIC ENZYME INCREASED [None]
